FAERS Safety Report 5169450-2 (Version None)
Quarter: 2006Q4

REPORT INFORMATION
  Report Type: 
  Country: None (occurrence: None)
  Receive Date: 20061201
  Receipt Date: 20061118
  Transmission Date: 20070319
  Serious: Yes (Disabling, Other)
  Sender: FDA-Public Use
  Company Number: 2006120064

PATIENT
  Age: 61 Year
  Sex: Female
  Weight: 74.8435 kg

DRUGS (2)
  1. MEDROL [Suspect]
     Indication: OSTEOARTHRITIS
     Dosage: 80 MG
     Dates: start: 20060101, end: 20060901
  2. DIOVAN HCT [Concomitant]

REACTIONS (5)
  - ABASIA [None]
  - BLOOD PRESSURE DECREASED [None]
  - DIZZINESS [None]
  - DYSGRAPHIA [None]
  - SPEECH DISORDER [None]
